FAERS Safety Report 21072603 (Version 2)
Quarter: 2024Q4

REPORT INFORMATION
  Report Type: Report from Study
  Country: MX (occurrence: MX)
  Receive Date: 20220712
  Receipt Date: 20241108
  Transmission Date: 20250115
  Serious: Yes (Other)
  Sender: NOVARTIS
  Company Number: MX-NOVARTISPH-NVSC2022MX157666

PATIENT
  Age: 72 Year
  Sex: Female

DRUGS (1)
  1. IMATINIB [Suspect]
     Active Substance: IMATINIB
     Indication: Chronic myeloid leukaemia
     Dosage: 100 MG (2 TABLETS), QD
     Route: 048

REACTIONS (6)
  - Hip fracture [Unknown]
  - Spinal fracture [Unknown]
  - Rib fracture [Unknown]
  - Pain [Unknown]
  - Gait disturbance [Unknown]
  - Incorrect dose administered [Unknown]

NARRATIVE: CASE EVENT DATE: 20240717
